FAERS Safety Report 4428193-0 (Version None)
Quarter: 2004Q3

REPORT INFORMATION
  Report Type: 
  Country: None (occurrence: None)
  Receive Date: 20040726
  Receipt Date: 20040503
  Transmission Date: 20050211
  Serious: No
  Sender: FDA-Public Use
  Company Number: USA040465741

PATIENT
  Age: 72 Year
  Sex: Female
  Weight: 77 kg

DRUGS (16)
  1. FORTEO [Suspect]
     Indication: OSTEOPOROSIS
     Dosage: 20 UG/1 DAY
     Dates: start: 20040315
  2. ACTONEL [Concomitant]
  3. ALLEGRA [Concomitant]
  4. AMBIEN [Concomitant]
  5. AVALIDE [Concomitant]
  6. BEXTRA [Concomitant]
  7. DIAZEPAM [Concomitant]
  8. FLONASE [Concomitant]
  9. GLUCOPHAGE [Concomitant]
  10. NEXIUM [Concomitant]
  11. PRILOSEC [Concomitant]
  12. PRAVACHOL [Concomitant]
  13. SYNTHROID [Concomitant]
  14. ZELNORM (ZELNORM) [Concomitant]
  15. MILK OF MAGNESIA TAB [Concomitant]
  16. ZOLOFT [Concomitant]

REACTIONS (2)
  - PRURITUS GENERALISED [None]
  - RASH [None]
